FAERS Safety Report 8828192 (Version 2)
Quarter: 2012Q4

REPORT INFORMATION
  Report Type: 
  Country: US (occurrence: US)
  Receive Date: 20121005
  Receipt Date: 20121123
  Transmission Date: 20130627
  Serious: Yes (Disabling)
  Sender: FDA-Public Use
  Company Number: US-PFIZER INC-2012246540

PATIENT
  Age: 67 Year
  Sex: Female
  Weight: 58 kg

DRUGS (23)
  1. NORVASC [Suspect]
     Indication: BLOOD PRESSURE ABNORMAL
     Dosage: 2.5 mg, 1x/day, daily
     Route: 048
  2. LIPITOR [Suspect]
     Indication: BLOOD CHOLESTEROL ABNORMAL
     Dosage: 10 mg, daily
  3. LEVOTHYROXINE SODIUM [Concomitant]
     Indication: THYROID DISORDER
     Dosage: 112 ug, 1x/day, daily (FOR 30 DAYS )
     Route: 048
  4. GEL KAM [Concomitant]
     Indication: MOUTH IRRITATION
     Dosage: 0.63 %, as needed
  5. GEL KAM [Concomitant]
     Indication: THROAT INFECTION
  6. RESTORIL [Concomitant]
     Dosage: 22.5 mg, at bedtime qhs as needed
     Route: 048
  7. FLUTICASONE FUROATE [Concomitant]
     Dosage: 27.5 ug, 1x/day (2 puffs An each nostril)
     Route: 045
  8. FOSAMAX [Concomitant]
     Dosage: 70 mg, q week
     Route: 048
  9. IPRATROPIUM-ALBUTEROL [Concomitant]
     Dosage: 3 ml, 2x/day, 0.5-2.5 (3) MG/3ML
  10. ZOLPIDEM TARTRATE [Concomitant]
     Dosage: 10 mg, qhs
     Route: 048
  11. CALTRATE WITH VITAMIN D [Concomitant]
     Dosage: 600-400 MG,
     Route: 048
  12. DUONEB [Concomitant]
     Dosage: 0.5/3mg/3ml, Q12 hours and Q6 hrs as needed
  13. HYDROMET [Concomitant]
     Indication: COUGH
     Dosage: 5 ml, 5-1.5 MG/5ML, every 6 hrs as needed
     Route: 048
  14. PERCOCET [Concomitant]
     Indication: PLEURITIC PAIN
     Dosage: 5-325 MG, every 6 hrs as needed
     Route: 048
  15. PERCOCET [Concomitant]
     Indication: SHINGLES
  16. PERCOCET [Concomitant]
     Indication: PLEURISY
  17. ADVIL [Concomitant]
     Indication: PLEURISY
     Dosage: UNK
  18. ADVIL [Concomitant]
     Indication: PLEURITIC PAIN
  19. ADVIL [Concomitant]
     Indication: SHINGLES
  20. LAMISIL [Concomitant]
     Indication: ONYCHOMYCOSIS
     Dosage: 250 mg, 1x/day
     Route: 048
  21. AMBIEN [Concomitant]
     Dosage: 10 mg,at bedtime, Once every evening
     Route: 048
  22. NYSTATIN [Concomitant]
     Indication: MOUTH IRRITATION
     Dosage: 4 ml, 100000 Unit/ml
  23. NYSTATIN [Concomitant]
     Indication: THROAT INFECTION

REACTIONS (2)
  - Blindness unilateral [Not Recovered/Not Resolved]
  - Blindness [Not Recovered/Not Resolved]
